FAERS Safety Report 10714574 (Version 1)
Quarter: 2015Q1

REPORT INFORMATION
  Report Type: Spontaneous
  Country: FR (occurrence: FR)
  Receive Date: 20150115
  Receipt Date: 20150115
  Transmission Date: 20150721
  Serious: Yes (Death, Life-Threatening, Hospitalization)
  Sender: FDA-Public Use
  Company Number: FR-PFIZER INC-2015014974

PATIENT
  Age: 87 Year

DRUGS (6)
  1. TRIFLUCAN [Suspect]
     Active Substance: FLUCONAZOLE
     Dosage: 200 MG, 1X/DAY
     Route: 048
  2. ZYLORIC [Interacting]
     Active Substance: ALLOPURINOL
     Dosage: 100 MG, 1X/DAY
     Route: 048
  3. PARACETAMOL [Interacting]
     Active Substance: ACETAMINOPHEN
     Dosage: 1 DF, 3X/DAY
     Route: 048
  4. PREVISCAN [Interacting]
     Active Substance: FLUINDIONE
     Dosage: 0.75 DF, 1X/DAY
     Route: 048
     Dates: end: 20141211
  5. COLCHIMAX [Interacting]
     Active Substance: COLCHICINE\DICYCLOMINE HYDROCHLORIDE
     Dosage: 1 DF, 2X/DAY
     Route: 048
  6. LASILIX [Interacting]
     Active Substance: FUROSEMIDE
     Dosage: 40 MG, 1X/DAY
     Route: 048

REACTIONS (2)
  - Drug interaction [Fatal]
  - Gastric ulcer haemorrhage [Fatal]

NARRATIVE: CASE EVENT DATE: 20141211
